FAERS Safety Report 5781109-7 (Version None)
Quarter: 2008Q2

REPORT INFORMATION
  Report Type: 
  Country: None (occurrence: None)
  Receive Date: 20080620
  Receipt Date: 20080616
  Transmission Date: 20081010
  Serious: Yes (Death)
  Sender: FDA-Public Use
  Company Number: KR-PFIZER INC-2008050570

PATIENT
  Sex: Male
  Weight: 38 kg

DRUGS (1)
  1. LINEZOLID [Suspect]
     Indication: PNEUMONIA
     Route: 042
     Dates: start: 20080610, end: 20080614

REACTIONS (1)
  - DEATH [None]
